FAERS Safety Report 4278980-7 (Version None)
Quarter: 2004Q1

REPORT INFORMATION
  Report Type: 
  Country: None (occurrence: None)
  Receive Date: 20040126
  Receipt Date: 20030414
  Transmission Date: 20041129
  Serious: Yes (Death, Hospitalization, Disabling, Other)
  Sender: FDA-Public Use
  Company Number: WAES 0304USA01432

PATIENT
  Age: 54 Year
  Sex: Male
  Weight: 136 kg

DRUGS (4)
  1. VICODIN [Concomitant]
  2. CARISOPRODOL [Concomitant]
     Indication: HYPOTONIA
  3. VIOXX [Suspect]
     Indication: ARTHRALGIA
     Route: 048
     Dates: start: 20010101, end: 20010616
  4. VIOXX [Suspect]
     Indication: LOCALISED OSTEOARTHRITIS
     Route: 048
     Dates: start: 20010101, end: 20010616

REACTIONS (10)
  - ACUTE MYOCARDIAL INFARCTION [None]
  - BLOOD PRESSURE INCREASED [None]
  - BONE CYST [None]
  - CARDIO-RESPIRATORY ARREST [None]
  - ELECTROMECHANICAL DISSOCIATION [None]
  - LOCALISED OSTEOARTHRITIS [None]
  - RESPIRATORY RATE INCREASED [None]
  - SCIATICA [None]
  - SPINAL COLUMN STENOSIS [None]
  - VENTRICULAR FIBRILLATION [None]
